FAERS Safety Report 12205720 (Version 1)
Quarter: 2016Q1

REPORT INFORMATION
  Report Type: Spontaneous
  Country: IT (occurrence: IT)
  Receive Date: 20160323
  Receipt Date: 20160323
  Transmission Date: 20160526
  Serious: Yes (Other)
  Sender: FDA-Public Use
  Company Number: IT-MYLANLABS-2016M1012349

PATIENT

DRUGS (16)
  1. METHOTREXATE [Suspect]
     Active Substance: METHOTREXATE
     Dosage: IN BLOCK AA, BB, CC (TRIPLE INTRATHECAL THERAPY)
     Route: 037
  2. CYTARABINE. [Suspect]
     Active Substance: CYTARABINE
     Dosage: IN BLOCK AA, BB, CC (TRIPLE INTRATHECAL THERAPY)
     Route: 037
  3. ETOPOSIDE. [Suspect]
     Active Substance: ETOPOSIDE
     Indication: POST TRANSPLANT LYMPHOPROLIFERATIVE DISORDER
     Dosage: 80 TO 100 MG/M2 DAILY (PART OF BLOCK AA)
     Route: 065
  4. DEXAMETHASONE. [Suspect]
     Active Substance: DEXAMETHASONE
     Dosage: 20 MG/M2 PER DAY; BLOCK CC
     Route: 065
  5. METHYLPREDNISOLONE. [Suspect]
     Active Substance: METHYLPREDNISOLONE
     Indication: POST TRANSPLANT LYMPHOPROLIFERATIVE DISORDER
     Dosage: IN BLOCK AA, BB, CC (TRIPLE INTRATHECAL THERAPY)
     Route: 037
  6. CYTARABINE. [Suspect]
     Active Substance: CYTARABINE
     Indication: POST TRANSPLANT LYMPHOPROLIFERATIVE DISORDER
     Dosage: 120 TO 150 MG/M2 EVERY 12 HOURS (PART OF BLOCK AA)
     Route: 065
  7. RITUXIMAB [Suspect]
     Active Substance: RITUXIMAB
     Indication: POST TRANSPLANT LYMPHOPROLIFERATIVE DISORDER
     Dosage: 4 CYCLES
     Route: 065
  8. DEXAMETHASONE. [Suspect]
     Active Substance: DEXAMETHASONE
     Indication: POST TRANSPLANT LYMPHOPROLIFERATIVE DISORDER
     Dosage: 10 MG/M2 PER DAY (PART OF BLOCK AA AND BB)
     Route: 065
  9. CYTARABINE. [Suspect]
     Active Substance: CYTARABINE
     Dosage: BLOCK CC
     Route: 065
  10. VINCRISTINE [Suspect]
     Active Substance: VINCRISTINE
     Indication: POST TRANSPLANT LYMPHOPROLIFERATIVE DISORDER
     Dosage: 1.5 G/M2 (IN BLOCK AA AND BB)
     Route: 065
  11. DAUNORUBICIN [Suspect]
     Active Substance: DAUNORUBICIN
     Indication: POST TRANSPLANT LYMPHOPROLIFERATIVE DISORDER
     Dosage: 20 TO 25 MG/M2 DAILY (BLOCK BB)
     Route: 065
  12. METHOTREXATE [Suspect]
     Active Substance: METHOTREXATE
     Indication: POST TRANSPLANT LYMPHOPROLIFERATIVE DISORDER
     Dosage: HIGH DOSE; 1.5 TO 3 G/M2 (IN BLOCK AA AND IN BLOCK BB)
     Route: 065
  13. IFOSFAMIDE. [Suspect]
     Active Substance: IFOSFAMIDE
     Indication: POST TRANSPLANT LYMPHOPROLIFERATIVE DISORDER
     Dosage: 600 TO 800 MG/M2 DAILY (PART OF BLOCK AA)
     Route: 065
  14. ETOPOSIDE. [Suspect]
     Active Substance: ETOPOSIDE
     Dosage: BLOCK CC
     Route: 065
  15. CYCLOPHOSPHAMIDE. [Suspect]
     Active Substance: CYCLOPHOSPHAMIDE
     Indication: POST TRANSPLANT LYMPHOPROLIFERATIVE DISORDER
     Dosage: 160 TO 200 MG/M2 DAILY (BLOCK BB)
     Route: 065
  16. VINDESINE [Suspect]
     Active Substance: VINDESINE
     Indication: POST TRANSPLANT LYMPHOPROLIFERATIVE DISORDER
     Dosage: 3 MG/M2; BLOCK CC
     Route: 065

REACTIONS (2)
  - Nervous system disorder [Unknown]
  - Renal impairment [Unknown]
